FAERS Safety Report 7465148-6 (Version None)
Quarter: 2011Q2

REPORT INFORMATION
  Report Type: 
  Country: None (occurrence: None)
  Receive Date: 20110509
  Receipt Date: 20110428
  Transmission Date: 20111010
  Serious: Yes (Hospitalization, Other)
  Sender: FDA-Public Use
  Company Number: US-JNJFOC-20110410165

PATIENT
  Sex: Male
  Weight: 81.65 kg

DRUGS (5)
  1. TYLOX [Suspect]
     Indication: PAIN
     Route: 065
  2. FENTANYL [Suspect]
     Indication: PAIN
     Route: 062
  3. FENTANYL [Suspect]
     Route: 062
  4. XANAX [Suspect]
     Indication: PRODUCT USED FOR UNKNOWN INDICATION
     Route: 065
  5. DURAGESIC-100 [Suspect]
     Route: 062

REACTIONS (17)
  - HOSPITALISATION [None]
  - WITHDRAWAL SYNDROME [None]
  - SKIN REACTION [None]
  - ABNORMAL LOSS OF WEIGHT [None]
  - ABDOMINAL DISCOMFORT [None]
  - MUSCLE SPASMS [None]
  - CONVULSION [None]
  - DRUG DOSE OMISSION [None]
  - FORMICATION [None]
  - PRODUCT QUALITY ISSUE [None]
  - CARDIO-RESPIRATORY ARREST [None]
  - ADVERSE EVENT [None]
  - DRUG INEFFECTIVE [None]
  - PAIN [None]
  - PRODUCT ADHESION ISSUE [None]
  - WRONG TECHNIQUE IN DRUG USAGE PROCESS [None]
  - BLOOD GLUCOSE DECREASED [None]
